FAERS Safety Report 17360878 (Version 1)
Quarter: 2020Q1

REPORT INFORMATION
  Report Type: Spontaneous
  Country: US (occurrence: US)
  Receive Date: 20200131
  Receipt Date: 20200131
  Transmission Date: 20200409
  Serious: No
  Sender: FDA-Public Use
  Company Number: None

PATIENT
  Sex: Female
  Weight: 110.7 kg

DRUGS (4)
  1. LETROZOLE 2.5MG [Concomitant]
     Active Substance: LETROZOLE
  2. TYLENOL 650MG [Concomitant]
  3. LOSARTAN 100MG [Concomitant]
     Active Substance: LOSARTAN
  4. IBRANCE [Suspect]
     Active Substance: PALBOCICLIB
     Indication: BREAST CANCER
     Route: 048
     Dates: start: 20190613, end: 20200131

REACTIONS (1)
  - Thrombocytopenia [None]
